FAERS Safety Report 19382033 (Version 3)
Quarter: 2021Q2

REPORT INFORMATION
  Report Type: Report from Study
  Country: CO (occurrence: CO)
  Receive Date: 20210607
  Receipt Date: 20210621
  Transmission Date: 20210717
  Serious: Yes (Other)
  Sender: FDA-Public Use
  Company Number: CO-TAKEDA-CO202026063

PATIENT
  Age: 20 Year
  Sex: Female
  Weight: 80 kg

DRUGS (7)
  1. ICATIBANT [Suspect]
     Active Substance: ICATIBANT ACETATE
     Dosage: 30 MG/ 3 ML
     Route: 058
     Dates: start: 20200910
  2. ICATIBANT [Suspect]
     Active Substance: ICATIBANT ACETATE
     Dosage: 30 MG/3 ML, PRN
     Route: 058
     Dates: start: 20200810
  3. ICATIBANT [Suspect]
     Active Substance: ICATIBANT ACETATE
     Indication: HEREDITARY ANGIOEDEMA
     Dosage: 30 MILLIGRAM/ML
     Route: 058
     Dates: start: 20200810
  4. ICATIBANT [Suspect]
     Active Substance: ICATIBANT ACETATE
     Dosage: 30 MG/ 3 ML
     Route: 058
     Dates: start: 20200910
  5. ICATIBANT [Suspect]
     Active Substance: ICATIBANT ACETATE
     Indication: HEREDITARY ANGIOEDEMA
     Dosage: 30 MILLIGRAM/ML
     Route: 058
     Dates: start: 20200810
  6. ICATIBANT [Suspect]
     Active Substance: ICATIBANT ACETATE
     Dosage: 30 MG/3 ML, PRN
     Route: 058
     Dates: start: 20200810
  7. TAKHZYRO [Suspect]
     Active Substance: LANADELUMAB-FLYO
     Indication: HEREDITARY ANGIOEDEMA
     Dosage: 300 MILLIGRAM, Q2 WEEKS
     Route: 058
     Dates: start: 20200810

REACTIONS (12)
  - Prescription drug used without a prescription [Recovering/Resolving]
  - Weight increased [Unknown]
  - Hereditary angioedema [Recovered/Resolved]
  - Pruritus [Recovering/Resolving]
  - Product availability issue [Unknown]
  - Thermal burn [Recovering/Resolving]
  - Headache [Recovering/Resolving]
  - Chills [Recovering/Resolving]
  - Suspected COVID-19 [Recovering/Resolving]
  - Weight decreased [Unknown]
  - Pyrexia [Recovering/Resolving]
  - Nasal congestion [Recovering/Resolving]

NARRATIVE: CASE EVENT DATE: 20200810
